FAERS Safety Report 5211508-3 (Version None)
Quarter: 2007Q1

REPORT INFORMATION
  Report Type: 
  Country: None (occurrence: None)
  Receive Date: 20070116
  Receipt Date: 20061229
  Transmission Date: 20070707
  Serious: Yes (Other)
  Sender: FDA-Public Use
  Company Number: US018425

PATIENT
  Age: 43 Year
  Sex: Female
  Weight: 43.0917 kg

DRUGS (7)
  1. ACTIQ [Suspect]
     Indication: MIGRAINE
     Dosage: 800 UG ONCE BUCCAL
     Route: 002
     Dates: start: 20060602, end: 20060602
  2. EFFEXOR XR [Concomitant]
  3. LAMICTAL [Concomitant]
  4. NEURONTIN [Concomitant]
  5. KLONOPIN [Concomitant]
  6. TRAZODONE HCL [Concomitant]
  7. ESTRATEST [Concomitant]

REACTIONS (4)
  - LOSS OF CONSCIOUSNESS [None]
  - OVERDOSE [None]
  - OXYGEN SATURATION DECREASED [None]
  - SOMNOLENCE [None]
